FAERS Safety Report 5366673-4 (Version None)
Quarter: 2007Q2

REPORT INFORMATION
  Report Type: 
  Country: None (occurrence: None)
  Receive Date: 20070622
  Receipt Date: 20061206
  Transmission Date: 20071010
  Serious: No
  Sender: FDA-Public Use
  Company Number: US-ASTRAZENECA-2005UW19503

PATIENT
  Age: 72 Year
  Sex: Female
  Weight: 67.6 kg

DRUGS (7)
  1. RHINOCORT [Suspect]
     Indication: HYPERSENSITIVITY
     Dosage: 120 METER SPRAY UNIT
     Route: 045
  2. RHINOCORT [Suspect]
     Indication: POSTNASAL DRIP
     Dosage: 120 METER SPRAY UNIT
     Route: 045
  3. AVAPRO [Concomitant]
  4. PROTONIX [Concomitant]
  5. FOSAMAX [Concomitant]
  6. MULTIVITAMIN [Concomitant]
  7. LOVASTATIN [Concomitant]

REACTIONS (3)
  - EPISTAXIS [None]
  - HEADACHE [None]
  - NASAL DISCOMFORT [None]
